FAERS Safety Report 7099117-5 (Version None)
Quarter: 2010Q4

REPORT INFORMATION
  Report Type: 
  Country: None (occurrence: None)
  Receive Date: 20101112
  Receipt Date: 20101103
  Transmission Date: 20110411
  Serious: Yes (Other)
  Sender: FDA-Public Use
  Company Number: B0359635A

PATIENT
  Sex: Male

DRUGS (10)
  1. SEROXAT [Suspect]
     Route: 065
     Dates: start: 19990901, end: 20021201
  2. IBUPROFEN [Suspect]
     Route: 065
     Dates: start: 20020820
  3. NUROFEN [Suspect]
     Route: 065
     Dates: start: 20020820
  4. CODEINE [Suspect]
     Route: 065
  5. ASPIRIN [Suspect]
     Route: 065
  6. LOFEPRAMINE [Suspect]
     Route: 065
  7. COCAINE [Concomitant]
     Route: 065
  8. METHYLENEDIOXYMETHAMPHETAMINE [Concomitant]
     Route: 065
  9. FLUOXETINE [Concomitant]
     Route: 065
  10. LITHIUM [Concomitant]
     Route: 065

REACTIONS (11)
  - AGGRESSION [None]
  - CONSTIPATION [None]
  - DEPRESSION [None]
  - DRUG WITHDRAWAL SYNDROME [None]
  - DRY MOUTH [None]
  - OVERDOSE [None]
  - SEXUAL DYSFUNCTION [None]
  - SOCIAL PHOBIA [None]
  - SUICIDAL IDEATION [None]
  - SUICIDE ATTEMPT [None]
  - VISION BLURRED [None]
